FAERS Safety Report 7383461-8 (Version None)
Quarter: 2011Q1

REPORT INFORMATION
  Report Type: 
  Country: None (occurrence: None)
  Receive Date: 20110330
  Receipt Date: 20110323
  Transmission Date: 20110831
  Serious: Yes (Other)
  Sender: FDA-Public Use
  Company Number: FR-PFIZER INC-2011065788

PATIENT
  Age: 62 Year
  Sex: Female

DRUGS (8)
  1. PIRILENE [Concomitant]
     Indication: TUBERCULOSIS
     Dosage: UNK
     Dates: start: 20110125
  2. MYAMBUTOL [Concomitant]
     Indication: TUBERCULOSIS
     Dosage: UNK
     Dates: start: 20110125
  3. CYCLOSERINE [Concomitant]
     Indication: TUBERCULOSIS
     Dosage: UNK
     Dates: start: 20110122
  4. PRIMPERAN TAB [Concomitant]
     Dosage: UNK
  5. AMIKLIN [Concomitant]
     Indication: TUBERCULOSIS
     Dosage: UNK
     Dates: start: 20110125
  6. ZYVOX [Suspect]
     Indication: TUBERCULOSIS
     Dosage: 600 MG, 2X/DAY
     Route: 048
     Dates: start: 20110125
  7. MOPRAL [Concomitant]
     Dosage: UNK
  8. PARA AMINOSALICYLIC ACID [Concomitant]
     Indication: TUBERCULOSIS
     Dosage: UNK
     Dates: start: 20110125

REACTIONS (1)
  - HYPERKALAEMIA [None]
